FAERS Safety Report 4621218-9 (Version None)
Quarter: 2005Q1

REPORT INFORMATION
  Report Type: 
  Country: None (occurrence: None)
  Receive Date: 20050321
  Receipt Date: 20050321
  Transmission Date: 20050727
  Serious: Yes (Other)
  Sender: FDA-Public Use
  Company Number: None

PATIENT
  Age: 63 Year
  Sex: Female
  Weight: 68.0396 kg

DRUGS (2)
  1. FOSAMAX [Suspect]
     Dosage: 35MG   WEEKLY   ORAL
     Route: 048
     Dates: start: 20010301, end: 20050319
  2. TAMOXIFEN    10 [Suspect]
     Dosage: 10MG   DAILY    ORAL
     Route: 048
     Dates: start: 20010301, end: 20050319

REACTIONS (2)
  - TOOTH DISORDER [None]
  - TOOTH LOSS [None]
